FAERS Safety Report 7773457-6 (Version None)
Quarter: 2011Q3

REPORT INFORMATION
  Report Type: 
  Country: None (occurrence: None)
  Receive Date: 20110922
  Receipt Date: 20110915
  Transmission Date: 20111222
  Serious: Yes (Hospitalization, Disabling)
  Sender: FDA-Public Use
  Company Number: JP-MERCK-1108USA00245

PATIENT
  Age: 74 Year
  Sex: Female

DRUGS (21)
  1. ZOCOR [Suspect]
     Route: 048
     Dates: end: 20110726
  2. THEO-DUR [Suspect]
     Indication: ASTHMA
     Route: 048
     Dates: end: 20110726
  3. SAWADOL L [Concomitant]
     Indication: ANGINA PECTORIS
     Route: 048
  4. SIGMART [Concomitant]
     Route: 048
  5. NITRODERM [Concomitant]
     Route: 061
  6. LANIRAPID [Concomitant]
     Indication: CARDIAC FAILURE
     Route: 048
  7. PHENOBARBITAL TAB [Suspect]
     Indication: INSOMNIA
     Route: 048
     Dates: end: 20110726
  8. MEDEPOLIN [Concomitant]
     Indication: ANXIETY DISORDER
     Route: 048
  9. MUCOSOLVAN L [Concomitant]
     Route: 048
  10. IRSOGLADINE MALEATE [Concomitant]
     Indication: GASTRITIS
     Route: 048
  11. AMLODIPINE [Concomitant]
     Indication: HYPERTENSION
     Route: 048
  12. OPAPROSMON [Concomitant]
     Indication: SPINAL COLUMN STENOSIS
     Route: 048
  13. HOKUNALIN [Concomitant]
     Route: 061
  14. MEPTIN [Concomitant]
     Indication: ASTHMA
     Route: 048
  15. PEPCID [Suspect]
     Indication: GASTRITIS
     Route: 048
     Dates: end: 20110726
  16. GASMOTIN [Concomitant]
     Route: 048
  17. EVAMYL [Concomitant]
     Route: 048
  18. KAMAG G [Concomitant]
     Indication: CONSTIPATION
     Route: 048
  19. GLAKAY [Concomitant]
     Route: 048
  20. LENDORMIN [Concomitant]
     Route: 048
  21. BERIZYM (ASPERGILLUS ORYZAE EXTRACT (+) CELLULASE (+) LIPASE (+) PANCR [Concomitant]
     Route: 048

REACTIONS (2)
  - RENAL FAILURE ACUTE [None]
  - RHABDOMYOLYSIS [None]
